FAERS Safety Report 4774999-8 (Version None)
Quarter: 2005Q3

REPORT INFORMATION
  Report Type: 
  Country: None (occurrence: None)
  Receive Date: 20050921
  Receipt Date: 20050916
  Transmission Date: 20060218
  Serious: Yes (Hospitalization)
  Sender: FDA-Public Use
  Company Number: GB-BRISTOL-MYERS SQUIBB COMPANY-13116231

PATIENT
  Age: 40 Year
  Sex: Male

DRUGS (3)
  1. EFAVIRENZ [Suspect]
     Indication: HIV INFECTION
  2. STAVUDINE [Suspect]
     Indication: HIV INFECTION
  3. LAMIVUDINE [Suspect]
     Indication: HIV INFECTION

REACTIONS (8)
  - ACID FAST BACILLI INFECTION [None]
  - GRANULOMA SKIN [None]
  - IMMUNE RECONSTITUTION SYNDROME [None]
  - MONOCYTOSIS [None]
  - MYCOBACTERIUM AVIUM COMPLEX IMMUNE RESTORATION DISEASE [None]
  - NEUTROPHILIA [None]
  - PYREXIA [None]
  - SKIN LESION [None]
